FAERS Safety Report 11743865 (Version 1)
Quarter: 2015Q4

REPORT INFORMATION
  Report Type: Spontaneous
  Country: US (occurrence: US)
  Receive Date: 20151116
  Receipt Date: 20151116
  Transmission Date: 20160304
  Serious: No
  Sender: FDA-Public Use
  Company Number: US-GALDERMA-US15000125

PATIENT
  Age: 60 Year
  Sex: Female

DRUGS (7)
  1. CLOBEX [Suspect]
     Active Substance: CLOBETASOL PROPIONATE
     Indication: INFLAMMATION
  2. CLOBEX [Suspect]
     Active Substance: CLOBETASOL PROPIONATE
     Indication: RASH PAPULAR
  3. ELON SHAMPOO [Concomitant]
     Indication: THERAPEUTIC SKIN CARE TOPICAL
     Route: 061
  4. CLOBEX [Suspect]
     Active Substance: CLOBETASOL PROPIONATE
     Indication: ERYTHEMA
  5. CLOBEX [Suspect]
     Active Substance: CLOBETASOL PROPIONATE
     Indication: PRURITUS
  6. CLOBEX [Suspect]
     Active Substance: CLOBETASOL PROPIONATE
     Indication: ALOPECIA
     Dosage: 0.05%
     Route: 061
     Dates: start: 201410, end: 201411
  7. CLOBEX [Suspect]
     Active Substance: CLOBETASOL PROPIONATE
     Indication: PAIN OF SKIN

REACTIONS (3)
  - Product use issue [Recovered/Resolved]
  - Application site odour [Not Recovered/Not Resolved]
  - Drug ineffective for unapproved indication [Not Recovered/Not Resolved]

NARRATIVE: CASE EVENT DATE: 201410
